FAERS Safety Report 20774799 (Version 1)
Quarter: 2022Q2

REPORT INFORMATION
  Report Type: Spontaneous
  Country: IE (occurrence: None)
  Receive Date: 20220501
  Receipt Date: 20220501
  Transmission Date: 20220720
  Serious: Yes (Hospitalization, Other)
  Sender: FDA-Public Use
  Company Number: None

PATIENT
  Age: 49 Year
  Sex: Female
  Weight: 58 kg

DRUGS (3)
  1. DEXAMETHASONE\NEOMYCIN\POLYMYXIN B SULFATE [Suspect]
     Active Substance: DEXAMETHASONE\NEOMYCIN\POLYMYXIN B SULFATE
     Indication: Eustachian tube dysfunction
     Dosage: OTHER QUANTITY : 1 DROP(S);?OTHER FREQUENCY : I USED IT ONCE;?
     Route: 001
     Dates: start: 20220327, end: 20220328
  2. PROCHLORPERAZINE [Concomitant]
     Active Substance: PROCHLORPERAZINE
  3. vitamin and mineral supplements [Concomitant]

REACTIONS (3)
  - Sudden hearing loss [None]
  - Vertigo [None]
  - Tinnitus [None]

NARRATIVE: CASE EVENT DATE: 20220327
